FAERS Safety Report 8485875-1 (Version None)
Quarter: 2012Q3

REPORT INFORMATION
  Report Type: 
  Country: None (occurrence: None)
  Receive Date: 20120703
  Receipt Date: 20120629
  Transmission Date: 20120928
  Serious: Yes (Hospitalization)
  Sender: FDA-Public Use
  Company Number: PHHY2012FR056427

PATIENT
  Age: 54 Year
  Sex: Female

DRUGS (3)
  1. TERCIAN [Concomitant]
  2. CLOZAPINE [Suspect]
     Dosage: 150 MG, QD
     Dates: start: 20111001
  3. CLOZAPINE [Suspect]
     Dosage: 200 MG, QD

REACTIONS (2)
  - ANTIPSYCHOTIC DRUG LEVEL ABOVE THERAPEUTIC [None]
  - MANIA [None]
